FAERS Safety Report 19993239 (Version 1)
Quarter: 2021Q4

REPORT INFORMATION
  Report Type: Spontaneous
  Country: US (occurrence: US)
  Receive Date: 20211025
  Receipt Date: 20211025
  Transmission Date: 20220303
  Serious: No
  Sender: FDA-Public Use
  Company Number: US-INCYTE CORPORATION-2021IN009420

PATIENT

DRUGS (3)
  1. JAKAFI [Suspect]
     Active Substance: RUXOLITINIB
     Indication: Haemophagocytic lymphohistiocytosis
     Dosage: 10 MILLIGRAM, BID
     Route: 048
     Dates: start: 202107
  2. JAKAFI [Suspect]
     Active Substance: RUXOLITINIB
     Indication: Hodgkin^s disease
  3. JAKAFI [Suspect]
     Active Substance: RUXOLITINIB
     Indication: Neutropenia

REACTIONS (1)
  - Off label use [Unknown]

NARRATIVE: CASE EVENT DATE: 20210701
